FAERS Safety Report 9197624 (Version 1)
Quarter: 2013Q1

REPORT INFORMATION
  Report Type: Spontaneous
  Country: US (occurrence: None)
  Receive Date: 20120709
  Receipt Date: 20120709
  Transmission Date: 20140127
  Serious: Yes (Hospitalization, Other)
  Sender: FDA-Public Use
  Company Number: PHHY2011US48189

PATIENT
  Age: 56 Year
  Sex: Female
  Weight: 66.7 kg

DRUGS (7)
  1. GLEEVEC (IMATINIB) [Suspect]
     Route: 048
  2. ZYRTEC (CETIRIZINE HYDROCHLORIDE) [Concomitant]
  3. TRICOR (FENOFIBRATE) [Concomitant]
  4. PRILOSEC (0MEPRAZOLE) [Concomitant]
  5. PRADAXA (DABIGATRAN) [Concomitant]
  6. VERAPAMIL (VERAPAMIL) [Concomitant]
  7. MULTIVITAMINS (ASCORBIC ACID, ERGOCALCIFEROL, FOLIC ACID, NICOINTINAMIDE, PANTHENOL, RETINAOL, RIBOFLAVIN, THIAMINE HYDROCHLORIDE) [Concomitant]

REACTIONS (1)
  - Supraventricular tachycardia [None]
